FAERS Safety Report 8985516 (Version 1)
Quarter: 2012Q4

REPORT INFORMATION
  Report Type: 
  Country: NL (occurrence: NL)
  Receive Date: 20121226
  Receipt Date: 20121226
  Transmission Date: 20130627
  Serious: Yes (Other)
  Sender: FDA-Public Use
  Company Number: NL-PFIZER INC-2012321529

PATIENT

DRUGS (1)
  1. LATANOPROST [Suspect]
     Dosage: UNK
     Route: 047
     Dates: start: 201208

REACTIONS (2)
  - Visual acuity reduced [Unknown]
  - Abnormal sensation in eye [Unknown]
